FAERS Safety Report 7138029-5 (Version None)
Quarter: 2010Q4

REPORT INFORMATION
  Report Type: 
  Country: None (occurrence: None)
  Receive Date: 20101206
  Receipt Date: 20101126
  Transmission Date: 20110411
  Serious: Yes (Hospitalization)
  Sender: FDA-Public Use
  Company Number: FR-PFIZER INC-2010163852

PATIENT
  Age: 6 Year
  Sex: Female

DRUGS (2)
  1. ATARAX [Suspect]
     Indication: ANXIETY
     Dosage: 0.5 TSP, AT NIGHT
     Route: 048
     Dates: start: 20100201, end: 20100101
  2. ATARAX [Suspect]
     Dosage: UNK
     Route: 048
     Dates: start: 20100907, end: 20100930

REACTIONS (1)
  - EYELID PTOSIS [None]
